FAERS Safety Report 19594446 (Version 1)
Quarter: 2021Q3

REPORT INFORMATION
  Report Type: Spontaneous
  Country: CA (occurrence: CA)
  Receive Date: 20210722
  Receipt Date: 20210722
  Transmission Date: 20211014
  Serious: Yes (Life-Threatening)
  Sender: FDA-Public Use
  Company Number: CA-TEVA-2021-CA-1934065

PATIENT
  Age: 9 Year
  Sex: Male
  Weight: 32 kg

DRUGS (25)
  1. AMLODIPINE [Concomitant]
     Active Substance: AMLODIPINE BESYLATE
  2. FISH OIL [Concomitant]
     Active Substance: FISH OIL
  3. HYDROCORTISONE. [Concomitant]
     Active Substance: HYDROCORTISONE
     Route: 065
  4. BETAMETHASONE. [Concomitant]
     Active Substance: BETAMETHASONE
  5. HYDROCORTISONE. [Concomitant]
     Active Substance: HYDROCORTISONE
     Route: 065
  6. CYTARABINE INJECTION [Suspect]
     Active Substance: CYTARABINE
     Indication: BURKITT^S LYMPHOMA
     Route: 042
  7. FLUTICASONE. [Concomitant]
     Active Substance: FLUTICASONE
  8. PIPERACILLIN AND TAZOBACTAM FORINJECTION [Concomitant]
  9. VALACYCLOVIR [Concomitant]
     Active Substance: VALACYCLOVIR HYDROCHLORIDE
  10. METHOTREXATE. [Suspect]
     Active Substance: METHOTREXATE
     Indication: BURKITT^S LYMPHOMA
     Route: 042
  11. LEUCOVORIN. [Concomitant]
     Active Substance: LEUCOVORIN
  12. TACROLIMUS. [Concomitant]
     Active Substance: TACROLIMUS
  13. RITUXAN [Suspect]
     Active Substance: RITUXIMAB
     Indication: BURKITT^S LYMPHOMA
     Route: 042
  14. DIPHENHYDRAMINE. [Concomitant]
     Active Substance: DIPHENHYDRAMINE
  15. MAGNESIUM [Concomitant]
     Active Substance: MAGNESIUM
  16. POTASSIUM [Concomitant]
     Active Substance: POTASSIUM
  17. SODIUM PICOSULFATE [Concomitant]
     Active Substance: SODIUM PICOSULFATE
  18. BISACODYL. [Concomitant]
     Active Substance: BISACODYL
  19. ALTEPLASE (T?PA) [Concomitant]
  20. FILGRASTIM [Concomitant]
     Active Substance: FILGRASTIM
  21. FLUCONAZOLE. [Concomitant]
     Active Substance: FLUCONAZOLE
  22. MYCAMINE [Concomitant]
     Active Substance: MICAFUNGIN SODIUM
  23. ONDANSETRON [Concomitant]
     Active Substance: ONDANSETRON
  24. POLYETHYLENE GLYCOL [Concomitant]
     Active Substance: POLYETHYLENE GLYCOLS
  25. PENTAMIDINE ISETHIONATE INJ 300MG/VIAL BP [Concomitant]

REACTIONS (4)
  - Body temperature fluctuation [Recovered/Resolved]
  - Diarrhoea [Recovered/Resolved]
  - Rectal haemorrhage [Recovered/Resolved]
  - Febrile neutropenia [Recovered/Resolved]
